FAERS Safety Report 9265214 (Version 2)
Quarter: 2013Q2

REPORT INFORMATION
  Report Type: Report from Study
  Country: FR (occurrence: FR)
  Receive Date: 20130501
  Receipt Date: 20130509
  Transmission Date: 20140414
  Serious: Yes (Hospitalization)
  Sender: FDA-Public Use
  Company Number: FR-ROCHE-1217951

PATIENT
  Age: 69 Year
  Sex: Female
  Weight: 59 kg

DRUGS (6)
  1. TRASTUZUMAB [Suspect]
     Indication: HER-2 POSITIVE BREAST CANCER
     Dosage: 480 MG LOADING DOSE, LAST DOSE PRIOR TO SAE:17/APR/2013
     Route: 042
     Dates: start: 20130417
  2. DOCETAXEL [Suspect]
     Indication: HER-2 POSITIVE BREAST CANCER
     Dosage: LAST DOSE PRIOR TO SAE:17/APR/2013
     Route: 042
     Dates: start: 20130417
  3. NEULASTA [Suspect]
     Indication: PRODUCT USED FOR UNKNOWN INDICATION
     Route: 065
     Dates: start: 20130317, end: 20130317
  4. ZOLPIDEM [Concomitant]
  5. SPIRONOLACTONE [Concomitant]
  6. PERTUZUMAB [Suspect]
     Indication: HER-2 POSITIVE BREAST CANCER
     Dosage: LAST DOSE PRIOR TO SAE:17/APR/2013
     Route: 042
     Dates: start: 20130417

REACTIONS (1)
  - Syncope [Recovered/Resolved]
